FAERS Safety Report 7621609-8 (Version None)
Quarter: 2011Q3

REPORT INFORMATION
  Report Type: 
  Country: None (occurrence: None)
  Receive Date: 20110719
  Receipt Date: 20080730
  Transmission Date: 20111222
  Serious: Yes (Death, Disabling)
  Sender: FDA-Public Use
  Company Number: US-BAYER-US-2007-042050

PATIENT
  Age: 47 Year
  Sex: Female
  Weight: 70.748 kg

DRUGS (31)
  1. ACETYLSALICYLIC ACID SRT [Concomitant]
  2. FERROUS SULFATE TAB [Concomitant]
     Dosage: 325 MG THREE TIMES DAILY
     Route: 048
  3. MAGNEVIST [Suspect]
     Indication: NUCLEAR MAGNETIC RESONANCE IMAGING
     Dosage: UNK
     Route: 042
     Dates: start: 20040324, end: 20040324
  4. EPOGEN [Concomitant]
  5. PREDNISONE [Concomitant]
     Dosage: UNK
     Dates: start: 20030610
  6. ZOVIRAX [Concomitant]
     Dosage: UNK
     Dates: end: 20050825
  7. LASIX [Concomitant]
     Dosage: 40 MG EVERY MORNING
     Route: 048
  8. LOTENSIN [Concomitant]
  9. CYPROHEPTADINE HCL [Concomitant]
     Route: 048
  10. MAGNESIUM OXIDE [Concomitant]
     Dosage: 400 MG TWICE DAILY
  11. MAGNEVIST [Suspect]
     Dosage: 20ML VIAL
     Dates: start: 20050427, end: 20050427
  12. GADOLINIUM IN UNSPECIFIED DRUG [Suspect]
     Indication: NUCLEAR MAGNETIC RESONANCE IMAGING BRAIN
     Dosage: UNK
     Dates: start: 20040929, end: 20040929
  13. HECTOROL [Concomitant]
  14. LABETALOL HCL [Concomitant]
     Dosage: UNK
     Route: 048
     Dates: end: 20050601
  15. MAGNEVIST [Suspect]
     Indication: ANGIOGRAM
     Dosage: UNK
     Route: 042
     Dates: start: 20040330, end: 20040330
  16. MAGNEVIST [Suspect]
     Dosage: UNK
     Dates: start: 20040403, end: 20040403
  17. IMURAN [Concomitant]
     Dosage: UNK
     Dates: end: 20050601
  18. MAGNEVIST [Suspect]
     Dosage: 20 ML
     Dates: start: 20040407, end: 20040407
  19. KEPPRA [Concomitant]
  20. PRAVACHOL [Concomitant]
     Dosage: 40 MG AT BEDTIME
     Route: 048
  21. MYCELEX [Concomitant]
     Dosage: UNK
     Route: 048
     Dates: start: 20030717
  22. MAGNEVIST [Suspect]
     Indication: NUCLEAR MAGNETIC RESONANCE IMAGING BRAIN
     Dosage: 15 ML
     Dates: start: 20040426, end: 20040426
  23. MAGNEVIST [Suspect]
     Dosage: 20 ML
     Dates: start: 20040527, end: 20040527
  24. MAGNEVIST [Suspect]
     Dosage: TWO 20 ML VIAL
     Dates: start: 20050426, end: 20050426
  25. GADOLINIUM IN UNSPECIFIED DRUG [Suspect]
     Indication: NUCLEAR MAGNETIC RESONANCE IMAGING
     Dosage: UNK
     Dates: start: 20050708, end: 20050708
  26. RENAGEL [Concomitant]
  27. NEORAL [Concomitant]
  28. RAPAMUNE [Concomitant]
  29. NORVASC [Concomitant]
     Dosage: UNK
     Dates: end: 20050601
  30. PHENYTEK [Concomitant]
  31. DEPAKOTE [Concomitant]
     Route: 048

REACTIONS (8)
  - ANXIETY [None]
  - NEPHROGENIC SYSTEMIC FIBROSIS [None]
  - SKIN FIBROSIS [None]
  - FIBROSIS [None]
  - INJURY [None]
  - PAIN [None]
  - EMOTIONAL DISTRESS [None]
  - ANHEDONIA [None]
